FAERS Safety Report 13396477 (Version 2)
Quarter: 2017Q2

REPORT INFORMATION
  Report Type: Spontaneous
  Country: JP (occurrence: JP)
  Receive Date: 20170403
  Receipt Date: 20170425
  Transmission Date: 20170830
  Serious: Yes (Other)
  Sender: FDA-Public Use
  Company Number: JP-PFIZER INC-2017139902

PATIENT
  Age: 59 Year
  Sex: Male

DRUGS (4)
  1. SEIBULE [Suspect]
     Active Substance: MIGLITOL
     Indication: TYPE 2 DIABETES MELLITUS
     Dosage: 150 MG, UNK
     Route: 048
  2. ATELEC [Concomitant]
     Active Substance: CILNIDIPINE
     Dosage: UNK
  3. SUINY [Suspect]
     Active Substance: ANAGLIPTIN
     Indication: TYPE 2 DIABETES MELLITUS
     Dosage: 200 MG, 1X/DAY
     Route: 048
     Dates: start: 20141119
  4. EPADEL [Concomitant]
     Active Substance: ICOSAPENT
     Dosage: UNK

REACTIONS (3)
  - Hypertriglyceridaemia [Unknown]
  - Thyroid adenoma [Unknown]
  - High density lipoprotein decreased [Unknown]

NARRATIVE: CASE EVENT DATE: 20160906
